FAERS Safety Report 6696559-4 (Version None)
Quarter: 2010Q2

REPORT INFORMATION
  Report Type: 
  Country: None (occurrence: None)
  Receive Date: 20100426
  Receipt Date: 20100416
  Transmission Date: 20101027
  Serious: Yes (Other)
  Sender: FDA-Public Use
  Company Number: US-JNJFOC-20100404581

PATIENT
  Sex: Female

DRUGS (1)
  1. INVEGA SUSTENNA [Suspect]
     Indication: SCHIZOPHRENIA
     Route: 030

REACTIONS (5)
  - COMPLEX PARTIAL SEIZURES [None]
  - DYSARTHRIA [None]
  - EXOPHTHALMOS [None]
  - EYE MOVEMENT DISORDER [None]
  - MYDRIASIS [None]
